FAERS Safety Report 9826679 (Version 1)
Quarter: 2014Q1

REPORT INFORMATION
  Report Type: Spontaneous
  Country: US (occurrence: US)
  Receive Date: 20140117
  Receipt Date: 20140117
  Transmission Date: 20141002
  Serious: No
  Sender: FDA-Public Use
  Company Number: US-BIOGENIDEC-2014BI003148

PATIENT
  Age: 37 Year
  Sex: Female
  Weight: 63 kg

DRUGS (7)
  1. TECFIDERA [Suspect]
     Indication: PRODUCT USED FOR UNKNOWN INDICATION
     Route: 048
  2. TECFIDERA [Suspect]
     Indication: PRODUCT USED FOR UNKNOWN INDICATION
     Route: 048
  3. NAPROXEN [Concomitant]
     Route: 048
  4. CLONAZEPAM [Concomitant]
     Route: 048
  5. GABAPENTIN [Concomitant]
     Route: 048
  6. PEPTO BISMOL [Concomitant]
  7. NUVIGIL [Concomitant]
     Route: 048

REACTIONS (2)
  - Abdominal distension [Recovered/Resolved]
  - Abdominal discomfort [Recovered/Resolved]
